FAERS Safety Report 6172380-0 (Version None)
Quarter: 2009Q2

REPORT INFORMATION
  Report Type: 
  Country: None (occurrence: None)
  Receive Date: 20090429
  Receipt Date: 20090423
  Transmission Date: 20091009
  Serious: Yes (Other)
  Sender: FDA-Public Use
  Company Number: PHHY2009DE15675

PATIENT
  Sex: Female

DRUGS (1)
  1. PROVAS [Suspect]
     Indication: HYPERTENSION
     Dosage: 1 DF, QD
     Dates: start: 20090331, end: 20090421

REACTIONS (1)
  - ARTHRITIS [None]
